FAERS Safety Report 20135677 (Version 1)
Quarter: 2021Q4

REPORT INFORMATION
  Report Type: Spontaneous
  Country: US (occurrence: None)
  Receive Date: 20211201
  Receipt Date: 20211201
  Transmission Date: 20220304
  Serious: Yes (Hospitalization)
  Sender: FDA-Public Use
  Company Number: None

PATIENT
  Age: 67 Year
  Sex: Male
  Weight: 89.81 kg

DRUGS (1)
  1. WARFARIN [Suspect]
     Active Substance: WARFARIN
     Indication: Deep vein thrombosis
     Dosage: FREQUENCY : DAILY;?
     Route: 048
     Dates: start: 20020101

REACTIONS (6)
  - Fall [None]
  - Dizziness [None]
  - Back pain [None]
  - Urinary tract infection [None]
  - International normalised ratio increased [None]
  - Intentional overdose [None]

NARRATIVE: CASE EVENT DATE: 20211101
